FAERS Safety Report 24415989 (Version 6)
Quarter: 2025Q1

REPORT INFORMATION
  Report Type: Spontaneous
  Country: KR (occurrence: KR)
  Receive Date: 20241009
  Receipt Date: 20250213
  Transmission Date: 20250409
  Serious: Yes (Life-Threatening, Hospitalization, Other)
  Sender: CELLTRION
  Company Number: KR-CELLTRION INC.-2024KR019168

PATIENT

DRUGS (17)
  1. HERZUMA [Suspect]
     Active Substance: TRASTUZUMAB-PKRB
     Indication: Breast cancer
  2. HERZUMA [Suspect]
     Active Substance: TRASTUZUMAB-PKRB
     Route: 042
     Dates: start: 20240808, end: 20240828
  3. LETROZOLE [Suspect]
     Active Substance: LETROZOLE
     Indication: Breast cancer
  4. LETROZOLE [Suspect]
     Active Substance: LETROZOLE
     Route: 048
     Dates: start: 20240808, end: 20240828
  5. RIBOCICLIB [Suspect]
     Active Substance: RIBOCICLIB
     Indication: Breast cancer
     Route: 048
     Dates: start: 20240808, end: 20240828
  6. ROSUVASTATIN [Concomitant]
     Active Substance: ROSUVASTATIN
     Indication: Hyperlipidaemia
     Route: 048
     Dates: start: 2019
  7. TELMISARTAN [Concomitant]
     Active Substance: TELMISARTAN
     Indication: Hypertension
     Route: 048
     Dates: start: 2019
  8. REBAMIPIDE [Concomitant]
     Active Substance: REBAMIPIDE
     Indication: Gastritis
     Route: 048
     Dates: start: 20240805
  9. RABEPRAZOLE [Concomitant]
     Active Substance: RABEPRAZOLE
     Indication: Gastritis
     Route: 048
     Dates: start: 20240805
  10. AMLODIPINE [Concomitant]
     Active Substance: AMLODIPINE BESYLATE
     Indication: Hypotension
     Dates: start: 20241117
  11. CETIRIZINE [Concomitant]
     Active Substance: CETIRIZINE HYDROCHLORIDE
     Dates: end: 20241128
  12. TWOLION [Concomitant]
  13. APIXABAN [Concomitant]
     Active Substance: APIXABAN
  14. ENOXAPARIN SODIUM [Concomitant]
     Active Substance: ENOXAPARIN SODIUM
     Indication: Prophylaxis
  15. PREDNISOLONE [Concomitant]
     Active Substance: PREDNISOLONE
     Route: 048
     Dates: start: 20250110, end: 20250114
  16. PREDNISOLONE [Concomitant]
     Active Substance: PREDNISOLONE
     Route: 042
     Dates: start: 20250115, end: 20250127
  17. PREDNISOLONE [Concomitant]
     Active Substance: PREDNISOLONE
     Route: 048
     Dates: start: 20250128

REACTIONS (16)
  - Ventricular tachycardia [Unknown]
  - Sepsis associated acute kidney injury [Recovering/Resolving]
  - Septic shock [Not Recovered/Not Resolved]
  - Neutropenic sepsis [Recovered/Resolved with Sequelae]
  - COVID-19 [Unknown]
  - Staphylococcal sepsis [Unknown]
  - Fungal infection [Unknown]
  - Pneumonia [Unknown]
  - Haemorrhagic transformation stroke [Unknown]
  - Gastric ulcer haemorrhage [Recovering/Resolving]
  - Arthralgia [Recovered/Resolved with Sequelae]
  - Sputum increased [Unknown]
  - Drug eruption [Unknown]
  - Rash [Unknown]
  - Drug hypersensitivity [Unknown]
  - Pruritus [Unknown]

NARRATIVE: CASE EVENT DATE: 20240808
